FAERS Safety Report 10950189 (Version 2)
Quarter: 2015Q2

REPORT INFORMATION
  Report Type: Spontaneous
  Country: BR (occurrence: BR)
  Receive Date: 20150324
  Receipt Date: 20150527
  Transmission Date: 20150821
  Serious: Yes (Other)
  Sender: FDA-Public Use
  Company Number: ALCN2015BR001508

PATIENT
  Age: 75 Year
  Sex: Female
  Weight: 67 kg

DRUGS (5)
  1. CLINFAR [Concomitant]
     Active Substance: SIMVASTATIN
     Indication: BLOOD CHOLESTEROL INCREASED
     Dosage: 1 TABLET, QD
     Route: 048
     Dates: start: 201410
  2. REDUCLIM [Concomitant]
     Active Substance: TIBOLONE
     Indication: HORMONE REPLACEMENT THERAPY
     Dosage: 1 TABLET, QD
     Route: 048
     Dates: start: 201408
  3. LIORAM [Concomitant]
     Indication: SLEEP DISORDER
     Dosage: 0.5 TABLET, QHS
     Route: 048
  4. TIROXIN//LEVOTHYROXINE SODIUM [Concomitant]
     Indication: HYPOTHYROIDISM
     Dosage: 1 TABLET, QD
     Route: 048
  5. NEVANAC [Suspect]
     Active Substance: NEPAFENAC
     Indication: OFF LABEL USE
     Dosage: 1 GTT, ONCE/SINGLE
     Route: 047
     Dates: start: 20150223, end: 20150223

REACTIONS (3)
  - Metamorphopsia [Recovering/Resolving]
  - Product use issue [Recovering/Resolving]
  - Vision blurred [Recovering/Resolving]

NARRATIVE: CASE EVENT DATE: 20150223
